FAERS Safety Report 25591075 (Version 1)
Quarter: 2025Q3

REPORT INFORMATION
  Report Type: Spontaneous
  Country: US (occurrence: None)
  Receive Date: 20250721
  Receipt Date: 20250721
  Transmission Date: 20251020
  Serious: Yes (Other)
  Sender: FDA-CTU
  Company Number: None

PATIENT
  Age: 28 Year
  Sex: Male
  Weight: 77.11 kg

DRUGS (7)
  1. CORTICOTROPIN [Suspect]
     Active Substance: CORTICOTROPIN
     Indication: Rheumatoid arthritis
     Dosage: FREQUENCY : TWICE A DAY;?
     Route: 058
  2. Calcium with D3 Oral Tablet Chewabl [Concomitant]
  3. Magnesium Oxide Oral Tablet 400 MG [Concomitant]
  4. Folic Acid Oral Tablet 1 MG [Concomitant]
  5. Tylenol Extra Strength Oral Tablet [Concomitant]
  6. Methotrexate Sodium Injection Solut [Concomitant]
  7. Enbrel SureClick Subcut Sol 50mg [Concomitant]

REACTIONS (2)
  - Pain [None]
  - Musculoskeletal stiffness [None]

NARRATIVE: CASE EVENT DATE: 20250721
